FAERS Safety Report 4786811-1 (Version None)
Quarter: 2005Q4

REPORT INFORMATION
  Report Type: 
  Country: None (occurrence: None)
  Receive Date: 20051003
  Receipt Date: 20051003
  Transmission Date: 20060501
  Serious: Yes (Hospitalization)
  Sender: FDA-Public Use
  Company Number: None

PATIENT
  Age: 64 Year
  Sex: Male
  Weight: 91.2 kg

DRUGS (6)
  1. VINCRISTINE [Suspect]
     Indication: MANTLE CELL LYMPHOMA
     Dates: start: 20050822, end: 20050825
  2. RITUXAN [Suspect]
     Indication: MANTLE CELL LYMPHOMA
     Dates: start: 20050822, end: 20050825
  3. CYTOXAN [Suspect]
     Indication: MANTLE CELL LYMPHOMA
     Dates: start: 20050822, end: 20050825
  4. DOXORUBICIN HCL [Suspect]
     Indication: MANTLE CELL LYMPHOMA
     Dates: start: 20050822, end: 20050825
  5. BORTEZOMIB [Suspect]
     Indication: MANTLE CELL LYMPHOMA
     Dates: start: 20050822, end: 20050825
  6. DEXAMETHASONE [Suspect]
     Indication: MANTLE CELL LYMPHOMA
     Dates: start: 20050822, end: 20050825

REACTIONS (1)
  - BACK PAIN [None]
